FAERS Safety Report 10336105 (Version 1)
Quarter: 2014Q3

REPORT INFORMATION
  Report Type: Spontaneous
  Country: US (occurrence: US)
  Receive Date: 20140723
  Receipt Date: 20140723
  Transmission Date: 20150326
  Serious: Yes (Hospitalization)
  Sender: FDA-Public Use
  Company Number: US-BRISTOL-MYERS SQUIBB COMPANY-19770171

PATIENT
  Age: 56 Year
  Sex: Female

DRUGS (9)
  1. OMEGA-3-ACID ETHYL ESTERS. [Concomitant]
     Active Substance: OMEGA-3-ACID ETHYL ESTERS
  2. CLONAZEPAM. [Concomitant]
     Active Substance: CLONAZEPAM
  3. CLONIDINE HCL [Concomitant]
     Active Substance: CLONIDINE HYDROCHLORIDE
  4. ASCORBIC ACID. [Concomitant]
     Active Substance: ASCORBIC ACID
  5. PHENOBARBITONE [Concomitant]
     Active Substance: PHENOBARBITAL
  6. ARIXTRA [Suspect]
     Active Substance: FONDAPARINUX SODIUM
     Indication: THROMBOSIS
     Dosage: INJECTION
     Route: 058
     Dates: start: 201301, end: 201301
  7. COUMADIN [Suspect]
     Active Substance: WARFARIN SODIUM
     Dates: start: 201301, end: 201301
  8. HEPARIN [Suspect]
     Active Substance: HEPARIN SODIUM
     Dates: start: 201301, end: 201301
  9. GABAPENTIN. [Concomitant]
     Active Substance: GABAPENTIN

REACTIONS (1)
  - Pulmonary embolism [Recovering/Resolving]

NARRATIVE: CASE EVENT DATE: 201301
